FAERS Safety Report 4334128-1 (Version None)
Quarter: 2004Q2

REPORT INFORMATION
  Report Type: 
  Country: None (occurrence: None)
  Receive Date: 20040405
  Receipt Date: 20040323
  Transmission Date: 20050107
  Serious: Yes (Hospitalization)
  Sender: FDA-Public Use
  Company Number: ESP-DEC-101

PATIENT
  Age: 59 Year
  Sex: Female

DRUGS (7)
  1. DECLOMYCIN (DEMECLOCYCLINE) [Suspect]
     Indication: HYPONATRAEMIA
  2. SIMVASTATIN [Suspect]
  3. VALPROATE SODIUM [Concomitant]
  4. ATENOLOL [Concomitant]
  5. PHENYTOIN [Concomitant]
  6. LAMOTRIGINE [Concomitant]
  7. ASPIRIN [Concomitant]

REACTIONS (1)
  - STEVENS-JOHNSON SYNDROME [None]
